FAERS Safety Report 5450423-7 (Version None)
Quarter: 2007Q3

REPORT INFORMATION
  Report Type: 
  Country: None (occurrence: None)
  Receive Date: 20070912
  Receipt Date: 20070831
  Transmission Date: 20080115
  Serious: Yes (Other)
  Sender: FDA-Public Use
  Company Number: US-PFIZER INC-2007074436

PATIENT
  Sex: Female
  Weight: 79.8 kg

DRUGS (6)
  1. CHANTIX [Suspect]
     Indication: SMOKING CESSATION THERAPY
     Route: 048
  2. LEXAPRO [Concomitant]
  3. LIBRAX [Concomitant]
  4. LORTAB [Concomitant]
  5. VITAMIN CAP [Concomitant]
  6. STOOL SOFTENER [Concomitant]
     Indication: CONSTIPATION

REACTIONS (5)
  - HEADACHE [None]
  - LETHARGY [None]
  - NAUSEA [None]
  - PERFORMANCE STATUS DECREASED [None]
  - SOMNOLENCE [None]
